FAERS Safety Report 17606894 (Version 4)
Quarter: 2020Q3

REPORT INFORMATION
  Report Type: Spontaneous
  Country: AU (occurrence: AU)
  Receive Date: 20200331
  Receipt Date: 20200720
  Transmission Date: 20201102
  Serious: Yes (Other)
  Sender: FDA-Public Use
  Company Number: AU-MYLANLABS-2020M1033161

PATIENT
  Sex: Male

DRUGS (2)
  1. ASMOL (SALBUTAMOL) [Suspect]
     Active Substance: ALBUTEROL
     Indication: PRODUCT USED FOR UNKNOWN INDICATION
     Dosage: UNK
  2. ASMOL (SALBUTAMOL) [Suspect]
     Active Substance: ALBUTEROL
     Dosage: UNK

REACTIONS (3)
  - Product dose omission issue [Unknown]
  - Drug ineffective [Unknown]
  - Product quality issue [Unknown]
